FAERS Safety Report 15885233 (Version 5)
Quarter: 2020Q2

REPORT INFORMATION
  Report Type: Spontaneous
  Country: FR (occurrence: FR)
  Receive Date: 20190129
  Receipt Date: 20200624
  Transmission Date: 20200713
  Serious: Yes (Disabling, Other)
  Sender: FDA-Public Use
  Company Number: FR-GILEAD-2019-0383991

PATIENT
  Age: 40 Year
  Sex: Male
  Weight: 66 kg

DRUGS (4)
  1. LAMALINE (ACETAMINOPHEN\CAFFEINE\OPIUM) [Concomitant]
     Active Substance: ACETAMINOPHEN\CAFFEINE\OPIUM
  2. NAPROXEN. [Concomitant]
     Active Substance: NAPROXEN
     Route: 048
  3. BIKTARVY [Suspect]
     Active Substance: BICTEGRAVIR SODIUM\EMTRICITABINE\TENOFOVIR ALAFENAMIDE FUMARATE
     Indication: HIV INFECTION
     Dosage: 1 DF
     Route: 048
     Dates: start: 20181116
  4. WELLVONE [Concomitant]
     Active Substance: ATOVAQUONE
     Dosage: UNK
     Route: 048
     Dates: start: 20181116, end: 20181121

REACTIONS (5)
  - Vertigo [Recovered/Resolved]
  - Pyrexia [Recovered/Resolved]
  - Hypersomnia [Recovered/Resolved]
  - Asthenia [Recovering/Resolving]
  - Vomiting [Recovered/Resolved]

NARRATIVE: CASE EVENT DATE: 20181117
